FAERS Safety Report 7041869-4 (Version None)
Quarter: 2010Q4

REPORT INFORMATION
  Report Type: 
  Country: None (occurrence: None)
  Receive Date: 20101007
  Receipt Date: 20100928
  Transmission Date: 20110411
  Serious: Yes (Hospitalization)
  Sender: FDA-Public Use
  Company Number: 2010MA003131

PATIENT
  Age: 72 Year
  Sex: Male

DRUGS (7)
  1. ACETAMINOPHEN AND CODEINE PHOSPHATE [Suspect]
     Indication: OSTEOARTHRITIS
     Dosage: 2 DF;PO
     Route: 048
     Dates: start: 20100602
  2. BISOPROLOL [Concomitant]
  3. ACETYLSALICYLIC ACID [Concomitant]
  4. GLYCERYL TRINITRATE [Concomitant]
  5. SIMVASTATIN [Concomitant]
  6. CANDESARTAN CILEXETIL [Concomitant]
  7. PREV MEDS [Concomitant]

REACTIONS (1)
  - BRADYCARDIA [None]
